FAERS Safety Report 13430225 (Version 1)
Quarter: 2017Q2

REPORT INFORMATION
  Report Type: Spontaneous
  Country: US (occurrence: US)
  Receive Date: 20170411
  Receipt Date: 20170411
  Transmission Date: 20170830
  Serious: Yes (Other)
  Sender: FDA-Public Use
  Company Number: None

PATIENT
  Age: 61 Year
  Sex: Female

DRUGS (1)
  1. ENBREL [Suspect]
     Active Substance: ETANERCEPT
     Indication: PSORIATIC ARTHROPATHY
     Route: 058
     Dates: start: 20160926

REACTIONS (4)
  - Joint stiffness [None]
  - Hair growth abnormal [None]
  - Gait disturbance [None]
  - Hormone level abnormal [None]

NARRATIVE: CASE EVENT DATE: 20160301
